FAERS Safety Report 6961808-1 (Version None)
Quarter: 2010Q3

REPORT INFORMATION
  Report Type: 
  Country: None (occurrence: None)
  Receive Date: 20100901
  Receipt Date: 20100825
  Transmission Date: 20110219
  Serious: Yes (Hospitalization, Other)
  Sender: FDA-Public Use
  Company Number: US-AMGEN-QUU433789

PATIENT
  Sex: Male
  Weight: 51 kg

DRUGS (11)
  1. NPLATE [Suspect]
     Indication: IDIOPATHIC THROMBOCYTOPENIC PURPURA
     Dates: start: 20100301
  2. NEUPOGEN [Suspect]
     Indication: NEUTROPENIA
  3. VALGANCICLOVIR [Concomitant]
  4. FLUCONAZOLE [Concomitant]
  5. DAPSONE [Concomitant]
  6. ENTOCORT EC [Concomitant]
  7. FOLIC ACID [Concomitant]
  8. MULTI-VITAMINS [Concomitant]
  9. NOREPINEPHRINE BITARTRATE [Concomitant]
  10. PREDNISONE [Concomitant]
  11. ACTIGALL [Concomitant]

REACTIONS (5)
  - EAR INFECTION [None]
  - GRAFT VERSUS HOST DISEASE [None]
  - SEPSIS [None]
  - THERAPEUTIC RESPONSE DECREASED [None]
  - WEIGHT FLUCTUATION [None]
